FAERS Safety Report 23016006 (Version 1)
Quarter: 2023Q4

REPORT INFORMATION
  Report Type: Spontaneous
  Country: US (occurrence: None)
  Receive Date: 20231001
  Receipt Date: 20231001
  Transmission Date: 20240110
  Serious: Yes (Other)
  Sender: FDA-Public Use
  Company Number: None

PATIENT
  Age: 74 Year
  Sex: Male
  Weight: 99 kg

DRUGS (13)
  1. JARDIANCE [Suspect]
     Active Substance: EMPAGLIFLOZIN
     Indication: Blood glucose abnormal
     Dosage: OTHER QUANTITY : 1 TABLET(S);?FREQUENCY : AT BEDTIME;?
     Route: 048
  2. AMLODIPINE [Concomitant]
     Active Substance: AMLODIPINE BESYLATE
  3. LOSARTAN [Concomitant]
     Active Substance: LOSARTAN
  4. hydrochlorothiazine [Concomitant]
  5. METFORMIN [Concomitant]
     Active Substance: METFORMIN HYDROCHLORIDE
  6. FINASTERIDE [Concomitant]
     Active Substance: FINASTERIDE
  7. FENOFIBRATE [Concomitant]
     Active Substance: FENOFIBRATE
  8. SIMVASTATIN [Concomitant]
     Active Substance: SIMVASTATIN
  9. MULTI MEN vitamin [Concomitant]
  10. VITAMIN D3 [Concomitant]
     Active Substance: CHOLECALCIFEROL
  11. GLUCOSAMINE [Concomitant]
     Active Substance: GLUCOSAMINE
  12. B complete [Concomitant]
  13. Qr10 [Concomitant]

REACTIONS (3)
  - Urinary tract infection [None]
  - Back pain [None]
  - Feeling abnormal [None]

NARRATIVE: CASE EVENT DATE: 20230101
